FAERS Safety Report 9539484 (Version 2)
Quarter: 2013Q4

REPORT INFORMATION
  Report Type: Spontaneous
  Country: US (occurrence: US)
  Receive Date: 20130920
  Receipt Date: 20131009
  Transmission Date: 20140711
  Serious: Yes (Other)
  Sender: FDA-Public Use
  Company Number: US-JNJFOC-20130910644

PATIENT
  Age: 66 Year
  Sex: Male

DRUGS (10)
  1. XARELTO [Suspect]
     Indication: CEREBROVASCULAR ACCIDENT PROPHYLAXIS
     Route: 048
     Dates: start: 20130317, end: 20130818
  2. XARELTO [Suspect]
     Indication: CEREBROVASCULAR ACCIDENT PROPHYLAXIS
     Route: 048
     Dates: start: 20130829, end: 2013
  3. XARELTO [Suspect]
     Indication: ATRIAL FIBRILLATION
     Route: 048
     Dates: start: 20130317, end: 20130818
  4. XARELTO [Suspect]
     Indication: ATRIAL FIBRILLATION
     Route: 048
     Dates: start: 20130829, end: 2013
  5. ASPIRIN [Suspect]
     Indication: ANTICOAGULANT THERAPY
     Route: 065
  6. ASPIRIN [Suspect]
     Indication: ANTICOAGULANT THERAPY
     Route: 065
  7. GEMFIBROZIL [Concomitant]
     Indication: BLOOD CHOLESTEROL
     Route: 065
  8. METFORMIN [Concomitant]
     Indication: DIABETES MELLITUS
     Route: 065
  9. AMIDARONE [Concomitant]
     Indication: HEART RATE
     Route: 065
  10. PEPCID [Concomitant]
     Indication: ABDOMINAL DISCOMFORT
     Route: 065

REACTIONS (3)
  - Procedural haemorrhage [Recovering/Resolving]
  - Haematoma [Recovering/Resolving]
  - Umbilical hernia repair [Unknown]
